APPROVED DRUG PRODUCT: RISPERIDONE
Active Ingredient: RISPERIDONE
Strength: 4MG
Dosage Form/Route: TABLET, ORALLY DISINTEGRATING;ORAL
Application: A078464 | Product #005
Applicant: SUN PHARMACEUTICAL INDUSTRIES LTD
Approved: Apr 8, 2013 | RLD: No | RS: No | Type: DISCN